FAERS Safety Report 6123167-6 (Version None)
Quarter: 2009Q1

REPORT INFORMATION
  Report Type: 
  Country: None (occurrence: None)
  Receive Date: 20090318
  Receipt Date: 20090310
  Transmission Date: 20090719
  Serious: Yes (Hospitalization)
  Sender: FDA-Public Use
  Company Number: DE-JNJFOC-20090201242

PATIENT
  Age: 42 Year
  Sex: Female

DRUGS (1)
  1. IMODIUM AD [Suspect]
     Indication: DRUG USE FOR UNKNOWN INDICATION
     Dosage: 4 MG OR 8 MG ONCE
     Route: 048

REACTIONS (3)
  - PRURITUS [None]
  - SKIN REACTION [None]
  - SWELLING [None]
